FAERS Safety Report 14337008 (Version 1)
Quarter: 2017Q4

REPORT INFORMATION
  Report Type: Spontaneous
  Country: GB (occurrence: GB)
  Receive Date: 20171229
  Receipt Date: 20171229
  Transmission Date: 20180321
  Serious: Yes (Other)
  Sender: FDA-Public Use
  Company Number: GB-TEVA-2017-GB-836842

PATIENT
  Age: 55 Year
  Sex: Male

DRUGS (8)
  1. ALLOPURINOL. [Concomitant]
     Active Substance: ALLOPURINOL
     Indication: PRODUCT USED FOR UNKNOWN INDICATION
     Route: 065
  2. CICLOSPORIN [Suspect]
     Active Substance: CYCLOSPORINE
     Indication: PSORIASIS
     Route: 065
     Dates: end: 201405
  3. CICLOSPORIN [Suspect]
     Active Substance: CYCLOSPORINE
     Route: 065
     Dates: start: 200709
  4. CICLOSPORIN [Suspect]
     Active Substance: CYCLOSPORINE
     Route: 065
     Dates: start: 199412
  5. CICLOSPORIN [Suspect]
     Active Substance: CYCLOSPORINE
     Dosage: 150 MILLIGRAM DAILY; 75 MG, BID
     Route: 065
     Dates: end: 201001
  6. CICLOSPORIN [Suspect]
     Active Substance: CYCLOSPORINE
     Dosage: 100 MILLIGRAM DAILY; 50 MG, BID
     Route: 065
  7. INDOMETACIN [Concomitant]
     Active Substance: INDOMETHACIN
     Indication: PRODUCT USED FOR UNKNOWN INDICATION
     Route: 065
  8. CICLOSPORIN [Suspect]
     Active Substance: CYCLOSPORINE
     Route: 065
     Dates: start: 200301, end: 200611

REACTIONS (6)
  - Blood creatinine increased [Unknown]
  - Fatigue [Unknown]
  - Paraesthesia [Unknown]
  - Psoriasis [Unknown]
  - Renal impairment [Unknown]
  - Gout [Recovering/Resolving]

NARRATIVE: CASE EVENT DATE: 20090702
